FAERS Safety Report 7493705-X (Version None)
Quarter: 2011Q2

REPORT INFORMATION
  Report Type: 
  Country: None (occurrence: None)
  Receive Date: 20110513
  Receipt Date: 20110504
  Transmission Date: 20111010
  Serious: Yes (Death)
  Sender: FDA-Public Use
  Company Number: 1000020840

PATIENT
  Age: 66 Year
  Sex: Male
  Weight: 70 kg

DRUGS (5)
  1. ROFLUMILAST (ROFLUMILAST)(TABLETS) [Suspect]
     Indication: CHRONIC OBSTRUCTIVE PULMONARY DISEASE
     Dosage: 500 MCG (500 MCG, 1 IN 1D), ORAL
     Route: 048
     Dates: start: 20110101
  2. SALBUTAMOL (SALBUTAMOL)(SALBUTAMOL) [Concomitant]
  3. SPIRIVA (TIOTROPIUM BROMIDE) (TIOTROPIUM BROMIDE) [Concomitant]
  4. CITALOPRAM (CITALOPRAM HYDROBROMIDE)(CITALOPRAM HYDROBROMIDE) [Concomitant]
  5. SERETIDE (FLUTICASONE, SALMETEROL)(FLUTICASONE, SALMETEROL) [Concomitant]

REACTIONS (4)
  - SYNCOPE [None]
  - VENTRICULAR FIBRILLATION [None]
  - UNRESPONSIVE TO STIMULI [None]
  - CARDIAC ARREST [None]
